FAERS Safety Report 8601309-8 (Version None)
Quarter: 2012Q3

REPORT INFORMATION
  Report Type: 
  Country: None (occurrence: None)
  Receive Date: 20120806
  Receipt Date: 20120806
  Transmission Date: 20120928
  Serious: Yes (Disabling)
  Sender: FDA-Public Use
  Company Number: None

PATIENT
  Age: 79 Year
  Sex: Female
  Weight: 73.9363 kg

DRUGS (33)
  1. CLONIDINE [Concomitant]
  2. LEVOXYL [Concomitant]
  3. ZYRTEC [Concomitant]
  4. VITAMIN B-12 [Concomitant]
  5. ASCORBIC ACID [Concomitant]
  6. CIPROFLOXACIN HCL [Suspect]
     Indication: DIVERTICULITIS
     Dosage: 1 EVERY 12 HOURS PO
     Route: 048
     Dates: start: 20120421, end: 20120501
  7. VITAMIN B-12 [Concomitant]
  8. CLINDAMYCIN [Concomitant]
  9. TYLENOL ARTHRITIS [Concomitant]
  10. ULTRAM [Concomitant]
  11. LUTEIN [Concomitant]
  12. ZINC SULFATE [Concomitant]
  13. BILBERRY [Concomitant]
  14. VITAMIN B1 TAB [Concomitant]
  15. VITAMIN E [Concomitant]
  16. AMBIEN [Concomitant]
  17. APPLE PECTIN [Concomitant]
  18. BLACK CHERRY [Concomitant]
  19. CRANBERRY [Concomitant]
  20. FOLIC ACID [Concomitant]
  21. HAWTHORN BERRIES [Concomitant]
  22. VITAMIN A [Concomitant]
  23. VITAMIN D [Concomitant]
  24. LIDOCAIND  PATCH [Concomitant]
  25. ALIGN PROBIOTIC [Concomitant]
  26. CALCIUM [Concomitant]
  27. COQ10 [Concomitant]
  28. MAGNESIUM [Concomitant]
  29. METRONIDAZOLE [Suspect]
     Indication: DIVERTICULITIS
     Dosage: 1  3 TIMES PER DAY PO
     Route: 048
     Dates: start: 20120421, end: 20120501
  30. ALLEGRA [Concomitant]
  31. ASPIRIN [Concomitant]
  32. GABAPENTIN [Concomitant]
  33. FISH OIL [Concomitant]

REACTIONS (9)
  - MUSCULOSKELETAL PAIN [None]
  - BLOOD PRESSURE INCREASED [None]
  - NECK PAIN [None]
  - LOCAL SWELLING [None]
  - QUALITY OF LIFE DECREASED [None]
  - NEURALGIA [None]
  - PAIN IN EXTREMITY [None]
  - URINARY TRACT INFECTION ENTEROCOCCAL [None]
  - ARTHRALGIA [None]
